FAERS Safety Report 8010062-0 (Version None)
Quarter: 2011Q4

REPORT INFORMATION
  Report Type: 
  Country: None (occurrence: None)
  Receive Date: 20111123
  Receipt Date: 20110823
  Transmission Date: 20120403
  Serious: No
  Sender: FDA-Public Use
  Company Number: 334450

PATIENT
  Age: 52 Year
  Sex: Female

DRUGS (1)
  1. VICTOZA [Suspect]
     Indication: OVERWEIGHT
     Dosage: 1.2 MG, QD, SUBCUTANEOUS 0.6 MG, QD, SUBCUTANEOUS
     Route: 058

REACTIONS (2)
  - WEIGHT DECREASED [None]
  - HEADACHE [None]
